FAERS Safety Report 25664716 (Version 1)
Quarter: 2025Q3

REPORT INFORMATION
  Report Type: Spontaneous
  Country: TW (occurrence: TW)
  Receive Date: 20250811
  Receipt Date: 20250811
  Transmission Date: 20251021
  Serious: Yes (Life-Threatening)
  Sender: BAYER HEALTHCARE PHARMACEUTICALS INC.
  Company Number: TW-BAYER-2025A104665

PATIENT
  Age: 52 Year
  Sex: Female

DRUGS (1)
  1. ULTRAVIST [Suspect]
     Active Substance: IOPROMIDE
     Indication: Computerised tomogram abdomen
     Dates: start: 20250724, end: 20250724

REACTIONS (6)
  - Anaphylactic shock [None]
  - Urticaria [None]
  - Dyspnoea [None]
  - Blood pressure decreased [None]
  - Incontinence [None]
  - Confusional state [None]

NARRATIVE: CASE EVENT DATE: 20250724
